FAERS Safety Report 5034708-4 (Version None)
Quarter: 2006Q2

REPORT INFORMATION
  Report Type: 
  Country: None (occurrence: None)
  Receive Date: 20060621
  Receipt Date: 20060613
  Transmission Date: 20061013
  Serious: No
  Sender: FDA-Public Use
  Company Number: 2006-164A

PATIENT
  Sex: Female

DRUGS (1)
  1. DAPSONE [Suspect]
     Indication: BLISTER

REACTIONS (1)
  - INSOMNIA [None]
